FAERS Safety Report 6634966-6 (Version None)
Quarter: 2010Q1

REPORT INFORMATION
  Report Type: 
  Country: None (occurrence: None)
  Receive Date: 20100315
  Receipt Date: 20100305
  Transmission Date: 20100710
  Serious: Yes (Other)
  Sender: FDA-Public Use
  Company Number: US-ASTRAZENECA-2010SE09612

PATIENT
  Age: 46 Year
  Sex: Female
  Weight: 85.7 kg

DRUGS (1)
  1. SEROQUEL XR [Suspect]
     Route: 048
     Dates: start: 20080101

REACTIONS (2)
  - FALL [None]
  - LOSS OF CONSCIOUSNESS [None]
